FAERS Safety Report 4812658-3 (Version None)
Quarter: 2005Q4

REPORT INFORMATION
  Report Type: 
  Country: None (occurrence: None)
  Receive Date: 20051028
  Receipt Date: 20041104
  Transmission Date: 20060501
  Serious: No
  Sender: FDA-Public Use
  Company Number: US-GLAXOSMITHKLINE-A0532719A

PATIENT
  Age: 7 Year
  Sex: Male

DRUGS (3)
  1. ADVAIR DISKUS 100/50 [Suspect]
     Indication: ASTHMA
     Dosage: 100MCG TWICE PER DAY
     Route: 055
     Dates: start: 20041101
  2. MAXAIR [Concomitant]
  3. ALLEGRA [Concomitant]

REACTIONS (3)
  - ASTHMA [None]
  - LACRIMATION INCREASED [None]
  - WHEEZING [None]
